FAERS Safety Report 9015989 (Version 2)
Quarter: 2013Q1

REPORT INFORMATION
  Report Type: Spontaneous
  Country: US (occurrence: US)
  Receive Date: 20130116
  Receipt Date: 20130205
  Transmission Date: 20140127
  Serious: Yes (Other)
  Sender: FDA-Public Use
  Company Number: US-JNJFOC-20130105657

PATIENT
  Age: 66 Year
  Sex: Female

DRUGS (2)
  1. CLADRIBINE [Suspect]
     Indication: HAIRY CELL LEUKAEMIA
     Route: 065
  2. RITUXIMAB [Suspect]
     Indication: HAIRY CELL LEUKAEMIA
     Route: 065

REACTIONS (4)
  - Hairy cell leukaemia [Unknown]
  - Malignant histiocytosis [Unknown]
  - Sarcoma [Unknown]
  - Splenomegaly [Unknown]
